FAERS Safety Report 22129524 (Version 1)
Quarter: 2023Q1

REPORT INFORMATION
  Report Type: Spontaneous
  Country: US (occurrence: None)
  Receive Date: 20230323
  Receipt Date: 20230323
  Transmission Date: 20230418
  Serious: Yes (Hospitalization, Other)
  Sender: FDA-Public Use
  Company Number: US-Unichem Pharmaceuticals (USA) Inc-UCM202303-000316

PATIENT
  Age: 47 Year
  Sex: Female

DRUGS (2)
  1. TIZANIDINE [Suspect]
     Active Substance: TIZANIDINE
     Indication: Muscle spasms
     Route: 048
  2. SUMATRIPTAN [Concomitant]
     Active Substance: SUMATRIPTAN
     Indication: Muscle spasms
     Route: 048

REACTIONS (4)
  - Stress cardiomyopathy [Recovered/Resolved]
  - Accidental overdose [Unknown]
  - Sinus bradycardia [Recovered/Resolved]
  - Hypotension [Unknown]
